FAERS Safety Report 17170398 (Version 1)
Quarter: 2019Q4

REPORT INFORMATION
  Report Type: Spontaneous
  Country: DE (occurrence: DE)
  Receive Date: 20191218
  Receipt Date: 20191218
  Transmission Date: 20200122
  Serious: Yes (Congenital Anomaly)
  Sender: FDA-Public Use
  Company Number: DE-ASTRAZENECA-2019SF78652

PATIENT
  Sex: Male
  Weight: 3 kg

DRUGS (6)
  1. PREDNISOLON [Concomitant]
     Active Substance: PREDNISOLONE
     Indication: ASSISTED FERTILISATION
     Dosage: 5 [MG/D ]
     Route: 064
  2. VITAMIN D NOS [Concomitant]
     Active Substance: VITAMIN D NOS
     Indication: VITAMIN D DEFICIENCY
     Dosage: 2000 [I.E./D ]
     Route: 064
  3. METFORMIN [Suspect]
     Active Substance: METFORMIN HYDROCHLORIDE
     Indication: INSULIN RESISTANCE
     Dosage: 1500 [MG/D ]
     Route: 064
  4. EUTHYROX [Concomitant]
     Active Substance: LEVOTHYROXINE SODIUM
     Indication: AUTOIMMUNE THYROIDITIS
     Dosage: 112 [???G/D ]
     Route: 064
     Dates: start: 20180803, end: 20190429
  5. CLEXANE 40 [Concomitant]
     Indication: THROMBOSIS PROPHYLAXIS
     Dosage: 4000 [I.E./D ]
     Route: 064
  6. SEROQUEL [Suspect]
     Active Substance: QUETIAPINE FUMARATE
     Indication: SCHIZOAFFECTIVE DISORDER
     Dosage: 300 [MG/D (BIS 225) ]/ DOSAGE WAS INCREASED FROM 225 MG/D TO 300 MG/D DURING PREGNANCY
     Route: 064
     Dates: start: 20180803, end: 20190429

REACTIONS (4)
  - Hypoplastic left heart syndrome [Recovered/Resolved with Sequelae]
  - Bicuspid aortic valve [Not Recovered/Not Resolved]
  - Foetal exposure during pregnancy [Unknown]
  - Atrial septal defect [Recovered/Resolved]

NARRATIVE: CASE EVENT DATE: 20190429
